FAERS Safety Report 26132156 (Version 2)
Quarter: 2025Q4

REPORT INFORMATION
  Report Type: Report from Study
  Country: CA (occurrence: CA)
  Receive Date: 20251208
  Receipt Date: 20251211
  Transmission Date: 20260117
  Serious: Yes (Other)
  Sender: ABBVIE
  Company Number: CA-ABBVIE-6572836

PATIENT
  Sex: Male

DRUGS (1)
  1. RINVOQ [Suspect]
     Active Substance: UPADACITINIB
     Indication: Crohn^s disease
     Route: 048

REACTIONS (8)
  - Colectomy [Unknown]
  - Eye haemorrhage [Unknown]
  - Epistaxis [Unknown]
  - Frequent bowel movements [Unknown]
  - Cardiomegaly [Unknown]
  - Ingrown hair [Unknown]
  - Ulcer [Unknown]
  - Post procedural haemorrhage [Unknown]
